FAERS Safety Report 8740496 (Version 2)
Quarter: 2013Q4

REPORT INFORMATION
  Report Type: Spontaneous
  Country: US (occurrence: US)
  Receive Date: 20120823
  Receipt Date: 20131101
  Transmission Date: 20140711
  Serious: No
  Sender: FDA-Public Use
  Company Number: US-009507513-1208USA007103

PATIENT
  Age: 22 Year
  Sex: Female
  Weight: 53.97 kg

DRUGS (6)
  1. NUVARING [Suspect]
     Indication: CONTRACEPTION
     Dosage: 1 DF, QM
     Route: 067
     Dates: start: 201206
  2. KLONOPIN [Concomitant]
  3. VICODIN [Concomitant]
  4. PERCOCET [Concomitant]
  5. IBUPROFEN [Concomitant]
  6. PROBIOTICA [Concomitant]

REACTIONS (2)
  - Withdrawal bleed [Unknown]
  - Device expulsion [Unknown]
